FAERS Safety Report 6597635-7 (Version None)
Quarter: 2010Q1

REPORT INFORMATION
  Report Type: 
  Country: None (occurrence: None)
  Receive Date: 20100219
  Receipt Date: 20100219
  Transmission Date: 20100710
  Serious: Yes (Other)
  Sender: FDA-Public Use
  Company Number: None

PATIENT
  Age: 21 Year
  Sex: Female
  Weight: 58.9676 kg

DRUGS (2)
  1. YAZ [Suspect]
     Indication: ACNE
     Dosage: ONE ORAL TABLET ONCE DAYLY PO
     Route: 048
     Dates: start: 20080610, end: 20090710
  2. METFORMIN HCL [Concomitant]

REACTIONS (1)
  - TYPE 1 DIABETES MELLITUS [None]
